FAERS Safety Report 17660601 (Version 1)
Quarter: 2020Q2

REPORT INFORMATION
  Report Type: Report from Study
  Country: US (occurrence: US)
  Receive Date: 20200413
  Receipt Date: 20200413
  Transmission Date: 20200713
  Serious: Yes (Hospitalization)
  Sender: FDA-Public Use
  Company Number: NVSC2020US096463

PATIENT
  Age: 63 Year
  Sex: Female
  Weight: 65.4 kg

DRUGS (2)
  1. DOCETAXEL. [Suspect]
     Active Substance: DOCETAXEL
     Indication: NON-SMALL CELL LUNG CANCER
     Dosage: 75 MG/M2
     Route: 042
     Dates: start: 20200313, end: 20200405
  2. ZYKADIA [Suspect]
     Active Substance: CERITINIB
     Indication: NON-SMALL CELL LUNG CANCER
     Dosage: 150 MG
     Route: 048
     Dates: start: 20200313, end: 20200403

REACTIONS (4)
  - Vomiting [Unknown]
  - Dizziness [Unknown]
  - Headache [Unknown]
  - Fatigue [Unknown]

NARRATIVE: CASE EVENT DATE: 20200406
